FAERS Safety Report 4474849-3 (Version None)
Quarter: 2004Q4

REPORT INFORMATION
  Report Type: 
  Country: None (occurrence: None)
  Receive Date: 20041014
  Receipt Date: 20041004
  Transmission Date: 20050328
  Serious: Yes (Death, Life-Threatening, Hospitalization, Other)
  Sender: FDA-Public Use
  Company Number: BR-MERCK-0410BRA00179

PATIENT
  Age: 86 Year
  Sex: Female

DRUGS (4)
  1. CINNARIZINE [Concomitant]
     Route: 065
  2. COUMARIN AND TROXERUTIN [Concomitant]
     Indication: CARDIOVASCULAR DISORDER
     Route: 065
  3. NIFEDIPINE [Concomitant]
     Indication: HYPERTENSION
     Route: 065
     Dates: start: 19960101
  4. VIOXX [Suspect]
     Indication: BACK PAIN
     Route: 048
     Dates: start: 20020401, end: 20040401

REACTIONS (2)
  - MYOCARDIAL INFARCTION [None]
  - VOMITING [None]
